FAERS Safety Report 6255090-0 (Version None)
Quarter: 2009Q3

REPORT INFORMATION
  Report Type: 
  Country: None (occurrence: None)
  Receive Date: 20090702
  Receipt Date: 20090624
  Transmission Date: 20100115
  Serious: Yes (Hospitalization)
  Sender: FDA-Public Use
  Company Number: US-JNJFOC-20090700235

PATIENT
  Sex: Female
  Weight: 73.6 kg

DRUGS (10)
  1. INFLIXIMAB [Suspect]
     Indication: INFLAMMATORY BOWEL DISEASE
     Route: 042
  2. FERROUS SULFATE TAB [Concomitant]
  3. 5-AMINOSALICYLIC ACID [Concomitant]
     Route: 048
  4. MULTIPLE VITAMIN [Concomitant]
  5. ZINC SULFATE [Concomitant]
  6. OMEGA 3 FATTY ACIDS [Concomitant]
  7. TRIAMCINOLONE ACETONIDE [Concomitant]
  8. LEVAQUIN [Concomitant]
  9. NYSTATIN [Concomitant]
  10. KETOCONAZOLE [Concomitant]

REACTIONS (1)
  - PERIRECTAL ABSCESS [None]
